FAERS Safety Report 7768708-8 (Version None)
Quarter: 2011Q3

REPORT INFORMATION
  Report Type: 
  Country: None (occurrence: None)
  Receive Date: 20110922
  Receipt Date: 20100419
  Transmission Date: 20111222
  Serious: Yes (Other)
  Sender: FDA-Public Use
  Company Number: US-ASTRAZENECA-2009UW05028

PATIENT
  Age: 30 Year
  Sex: Female

DRUGS (23)
  1. SEROQUEL [Suspect]
     Dosage: 200 TO 400 MG
     Route: 048
     Dates: start: 19910701
  2. VISTREL [Concomitant]
     Route: 048
     Dates: start: 19950101
  3. ZOLOFT [Concomitant]
     Dosage: 50-100 MG
     Route: 048
     Dates: start: 20000522, end: 20051215
  4. ALPRAZOLAM [Concomitant]
     Dates: start: 19990930
  5. SEROQUEL [Suspect]
     Dosage: 200 TO 400 MG
     Route: 048
     Dates: start: 19910701
  6. VISTREL [Concomitant]
     Indication: ANXIETY
     Dosage: 50 MG
     Route: 048
     Dates: start: 20000124
  7. FLEXERIL [Concomitant]
     Dates: start: 20060321
  8. ABILIFY [Concomitant]
  9. LOXITANE [Concomitant]
     Dosage: 50 MG
     Dates: start: 19980206
  10. DIOVAN [Concomitant]
     Dosage: 160-320 MG DAILY
     Route: 048
     Dates: start: 20051215, end: 20060218
  11. PROZAC [Concomitant]
     Dates: start: 20060321
  12. NORVASC [Concomitant]
     Dosage: 5-10 MG
     Dates: start: 20060321
  13. SEROQUEL [Suspect]
     Indication: SCHIZOPHRENIA
     Dosage: 25-600 MG
     Route: 048
     Dates: start: 19981117
  14. SEROQUEL [Suspect]
     Indication: DEPRESSION
     Dosage: 25-600 MG
     Route: 048
     Dates: start: 19981117
  15. VISTREL [Concomitant]
     Indication: PANIC DISORDER
     Dosage: 50 MG
     Route: 048
     Dates: start: 20000124
  16. VISTREL [Concomitant]
     Route: 048
     Dates: start: 19950101
  17. PLENDIL [Concomitant]
     Dates: end: 20051215
  18. NAVANE [Concomitant]
     Dosage: 5 MG
     Dates: start: 19990223
  19. DESYREL [Concomitant]
     Dosage: 50 MG
     Dates: start: 19980109
  20. COGENTIN [Concomitant]
     Dosage: 2 MG
     Dates: start: 19980109
  21. TRAZODONE HYDROCHLORIDE [Concomitant]
     Indication: PANIC DISORDER
     Route: 048
     Dates: start: 19950101
  22. TRAZODONE HYDROCHLORIDE [Concomitant]
     Indication: ANXIETY
     Route: 048
     Dates: start: 19950101
  23. STELAZINE [Concomitant]

REACTIONS (11)
  - HYPERLIPIDAEMIA [None]
  - BLOOD TRIGLYCERIDES INCREASED [None]
  - INTERVERTEBRAL DISC DEGENERATION [None]
  - MENTAL DISORDER [None]
  - TYPE 2 DIABETES MELLITUS [None]
  - BLOOD CHOLESTEROL INCREASED [None]
  - BACK PAIN [None]
  - DIABETIC KETOACIDOSIS [None]
  - OBESITY [None]
  - WEIGHT INCREASED [None]
  - HYPERTENSION [None]
